FAERS Safety Report 4319058-3 (Version None)
Quarter: 2004Q1

REPORT INFORMATION
  Report Type: 
  Country: None (occurrence: None)
  Receive Date: 20040318
  Receipt Date: 20040318
  Transmission Date: 20041129
  Serious: Yes (Other)
  Sender: FDA-Public Use
  Company Number: None

PATIENT
  Age: 29 Year
  Sex: Female
  Weight: 90.7194 kg

DRUGS (2)
  1. ORTHO EVRA [Suspect]
     Indication: CONTRACEPTION
     Dosage: 1 PATCH WEEKLY TRANSDERMAL
     Route: 062
     Dates: start: 20021101, end: 20021231
  2. SYNTHROID [Concomitant]

REACTIONS (2)
  - DRUG INEFFECTIVE [None]
  - PREGNANCY [None]
